FAERS Safety Report 9981644 (Version 1)
Quarter: 2014Q1

REPORT INFORMATION
  Report Type: Spontaneous
  Country: US (occurrence: None)
  Receive Date: 20140306
  Receipt Date: 20140306
  Transmission Date: 20141002
  Serious: Yes (Hospitalization)
  Sender: FDA-Public Use
  Company Number: None

PATIENT
  Age: 72 Year
  Sex: Female
  Weight: 76 kg

DRUGS (9)
  1. ISOFLURANE [Suspect]
     Indication: ANAESTHESIA
     Dates: start: 20140217
  2. SCOPOLOMINE [Concomitant]
  3. CYMBALTA [Concomitant]
  4. FENTANYL [Concomitant]
  5. LASIX [Concomitant]
  6. ASPART SLIDING SCALE INSULIN [Concomitant]
  7. NPH 70/30 [Concomitant]
  8. IMDUR [Concomitant]
  9. LEVOTHYROXINE [Concomitant]

REACTIONS (3)
  - Liver injury [None]
  - Aspartate aminotransferase increased [None]
  - Alanine aminotransferase increased [None]
